FAERS Safety Report 6785525-6 (Version None)
Quarter: 2010Q2

REPORT INFORMATION
  Report Type: 
  Country: None (occurrence: None)
  Receive Date: 20100621
  Receipt Date: 20100621
  Transmission Date: 20101027
  Serious: Yes (Hospitalization)
  Sender: FDA-Public Use
  Company Number: None

PATIENT
  Age: 75 Year
  Sex: Male
  Weight: 113.9 kg

DRUGS (10)
  1. SEPTRA [Suspect]
     Indication: URINARY TRACT INFECTION
     Dosage: 1 TAB BID PO
     Route: 048
  2. POTASSIUM CHLORIDE [Concomitant]
  3. METFORMIN HCL [Concomitant]
  4. ALLOPURINOL [Concomitant]
  5. ZOCOR [Concomitant]
  6. DARVOCET [Concomitant]
  7. COZAAR [Concomitant]
  8. LASIX [Concomitant]
  9. COUMADIN [Concomitant]
  10. RESTORIL [Concomitant]

REACTIONS (7)
  - ASTHENIA [None]
  - DRUG ERUPTION [None]
  - DRUG HYPERSENSITIVITY [None]
  - INTERNATIONAL NORMALISED RATIO ABNORMAL [None]
  - PNEUMONIA [None]
  - PYREXIA [None]
  - RENAL FAILURE [None]
